FAERS Safety Report 5236892-6 (Version None)
Quarter: 2007Q1

REPORT INFORMATION
  Report Type: 
  Country: None (occurrence: None)
  Receive Date: 20070213
  Receipt Date: 20070207
  Transmission Date: 20070707
  Serious: Yes (Death, Life-Threatening, Hospitalization)
  Sender: FDA-Public Use
  Company Number: FR-AVENTIS-200710465FR

PATIENT
  Age: 60 Year
  Sex: Female

DRUGS (2)
  1. KETEK [Suspect]
     Route: 048
     Dates: start: 20061220, end: 20061221
  2. PARACETAMOL [Concomitant]
     Dates: start: 20061220, end: 20061221

REACTIONS (5)
  - ASPIRATION [None]
  - GENERAL PHYSICAL HEALTH DETERIORATION [None]
  - HEPATITIS FULMINANT [None]
  - MENINGITIS PNEUMOCOCCAL [None]
  - SEPTIC SHOCK [None]
